FAERS Safety Report 5736970-9 (Version None)
Quarter: 2008Q2

REPORT INFORMATION
  Report Type: 
  Country: None (occurrence: None)
  Receive Date: 20080513
  Receipt Date: 20080513
  Transmission Date: 20081010
  Serious: No
  Sender: FDA-Public Use
  Company Number: None

PATIENT
  Sex: Female
  Weight: 78.0187 kg

DRUGS (1)
  1. LEVAQUIN [Suspect]
     Indication: UPPER RESPIRATORY TRACT INFECTION
     Dosage: 750 MG 1 QD PO
     Route: 048
     Dates: start: 20061225, end: 20070103

REACTIONS (7)
  - ARTHRALGIA [None]
  - BURSITIS [None]
  - MUSCLE STRAIN [None]
  - NO THERAPEUTIC RESPONSE [None]
  - PAIN [None]
  - TENDON INJURY [None]
  - TENDONITIS [None]
